FAERS Safety Report 5807086-8 (Version None)
Quarter: 2008Q3

REPORT INFORMATION
  Report Type: 
  Country: None (occurrence: None)
  Receive Date: 20080711
  Receipt Date: 20040420
  Transmission Date: 20090109
  Serious: Yes (Hospitalization)
  Sender: FDA-Public Use
  Company Number: GB-BAXTER-2007BH001136

PATIENT
  Age: 17 Year
  Sex: Male

DRUGS (6)
  1. SODIUM CHLORIDE 0.9% IN PLASTIC CONTAINER [Suspect]
     Indication: CHEMOTHERAPY
     Dosage: DOSE UNIT:UNKNOWN
     Route: 042
     Dates: start: 20010324
  2. CYTARABINE [Suspect]
     Indication: CHEMOTHERAPY
  3. CYTARABINE [Concomitant]
     Route: 042
  4. METOCLOPRAMIDE [Concomitant]
  5. ACETAMINOPHEN [Concomitant]
  6. LANSOPRAZOLE [Concomitant]

REACTIONS (5)
  - BLOOD PRESSURE DECREASED [None]
  - CHEST PAIN [None]
  - DYSPNOEA [None]
  - HYPERHIDROSIS [None]
  - TACHYCARDIA [None]
